FAERS Safety Report 24753672 (Version 1)
Quarter: 2024Q4

REPORT INFORMATION
  Report Type: Spontaneous
  Country: JP (occurrence: JP)
  Receive Date: 20241219
  Receipt Date: 20241219
  Transmission Date: 20250114
  Serious: Yes (Other)
  Sender: MYLAN
  Company Number: JP-MYLANLABS-2024M1113207

PATIENT
  Age: 75 Year
  Sex: Male

DRUGS (4)
  1. LYRICA [Suspect]
     Active Substance: PREGABALIN
     Indication: Immunoglobulin G4 related disease
     Dosage: 50 MILLIGRAM, BID
     Route: 048
  2. LYRICA [Suspect]
     Active Substance: PREGABALIN
     Indication: Hypoaesthesia
  3. LYRICA [Suspect]
     Active Substance: PREGABALIN
     Indication: Immunoglobulin G4 related disease
     Dosage: 75 MILLIGRAM, BID
     Route: 048
  4. LYRICA [Suspect]
     Active Substance: PREGABALIN
     Indication: Hypoaesthesia

REACTIONS (3)
  - Weight increased [Unknown]
  - Dizziness [Unknown]
  - Therapeutic product effect decreased [Unknown]
